FAERS Safety Report 14408071 (Version 2)
Quarter: 2018Q1

REPORT INFORMATION
  Report Type: Spontaneous
  Country: US (occurrence: US)
  Receive Date: 20180118
  Receipt Date: 20180123
  Transmission Date: 20180509
  Serious: Yes (Hospitalization, Other)
  Sender: FDA-Public Use
  Company Number: US-PFIZER INC-2018019006

PATIENT
  Age: 75 Year
  Sex: Female
  Weight: 77.98 kg

DRUGS (6)
  1. SPIRONOLACTONE. [Suspect]
     Active Substance: SPIRONOLACTONE
     Dosage: UNK
  2. REMODULIN [Suspect]
     Active Substance: TREPROSTINIL
     Dosage: 0.036 UG/KG, UNK
     Route: 042
  3. ELIQUIS [Concomitant]
     Active Substance: APIXABAN
     Dosage: UNK
  4. SILDENAFIL CITRATE. [Concomitant]
     Active Substance: SILDENAFIL CITRATE
     Dosage: UNK
  5. REMODULIN [Suspect]
     Active Substance: TREPROSTINIL
     Indication: PULMONARY ARTERIAL HYPERTENSION
     Dosage: 0.023 UG/KG, UNK
     Route: 042
     Dates: start: 20170901
  6. OPSUMIT [Concomitant]
     Active Substance: MACITENTAN
     Dosage: UNK

REACTIONS (11)
  - Dyspnoea exertional [Unknown]
  - Blood potassium increased [Unknown]
  - Weight increased [Not Recovered/Not Resolved]
  - Skin exfoliation [Recovering/Resolving]
  - Pain in extremity [Unknown]
  - Nausea [Recovering/Resolving]
  - Asthenia [Not Recovered/Not Resolved]
  - Ascites [Unknown]
  - Bacteraemia [Unknown]
  - Headache [Recovering/Resolving]
  - Generalised oedema [Not Recovered/Not Resolved]

NARRATIVE: CASE EVENT DATE: 2017
